FAERS Safety Report 19596554 (Version 1)
Quarter: 2021Q3

REPORT INFORMATION
  Report Type: Spontaneous
  Country: IT (occurrence: IT)
  Receive Date: 20210723
  Receipt Date: 20210723
  Transmission Date: 20211014
  Serious: Yes (Hospitalization, Other)
  Sender: FDA-Public Use
  Company Number: IT-SCIEGENPHARMA-2021SCILIT00580

PATIENT
  Age: 65 Year
  Sex: Male

DRUGS (11)
  1. ATORVASTATIN CALCIUM. [Suspect]
     Active Substance: ATORVASTATIN CALCIUM
     Indication: ACUTE MYOCARDIAL INFARCTION
     Route: 065
  2. PREDNISONE. [Interacting]
     Active Substance: PREDNISONE
     Indication: SUPPORTIVE CARE
     Route: 065
  3. PREDNISONE. [Interacting]
     Active Substance: PREDNISONE
     Dosage: 15 MG/DIE
     Route: 065
  4. BISOPROLOL [Concomitant]
     Active Substance: BISOPROLOL
     Indication: ACUTE MYOCARDIAL INFARCTION
     Route: 065
  5. TICAGRELOR. [Concomitant]
     Active Substance: TICAGRELOR
     Indication: ACUTE MYOCARDIAL INFARCTION
     Route: 065
  6. ASPIRINE [Concomitant]
     Active Substance: ASPIRIN
     Indication: ACUTE MYOCARDIAL INFARCTION
     Route: 065
  7. METHOTREXATE. [Interacting]
     Active Substance: METHOTREXATE
     Indication: SUPPORTIVE CARE
     Dosage: 15 MG/WEEK
     Route: 030
  8. METHOTREXATE. [Interacting]
     Active Substance: METHOTREXATE
     Dosage: 10  MG/WEEK
     Route: 030
  9. RAMIPRIL. [Concomitant]
     Active Substance: RAMIPRIL
     Indication: ACUTE MYOCARDIAL INFARCTION
     Route: 065
  10. IMMUNE GLOBULIN (IMMUNOGLOBULINS NOS) [Interacting]
     Active Substance: IMMUNE GLOBULIN NOS
     Indication: SUPPORTIVE CARE
     Dosage: 0.4 G/KG DIE
     Route: 042
  11. AZATHIOPRINE. [Interacting]
     Active Substance: AZATHIOPRINE
     Indication: SUPPORTIVE CARE
     Dosage: 100  MG/DIE
     Route: 065

REACTIONS (2)
  - Myasthenia gravis [Recovering/Resolving]
  - Immune-mediated myositis [Recovering/Resolving]
